FAERS Safety Report 7903705-0 (Version None)
Quarter: 2011Q4

REPORT INFORMATION
  Report Type: 
  Country: None (occurrence: None)
  Receive Date: 20111109
  Receipt Date: 20111104
  Transmission Date: 20120403
  Serious: Yes (Hospitalization)
  Sender: FDA-Public Use
  Company Number: US-ROCHE-1009894

PATIENT
  Sex: Male

DRUGS (1)
  1. ZELBORAF [Suspect]
     Indication: PRODUCT USED FOR UNKNOWN INDICATION

REACTIONS (7)
  - RASH [None]
  - CARDIAC FAILURE CONGESTIVE [None]
  - NAUSEA [None]
  - DECREASED APPETITE [None]
  - FATIGUE [None]
  - ARTHRALGIA [None]
  - VOMITING [None]
